FAERS Safety Report 9008403 (Version 1)
Quarter: 2013Q1

REPORT INFORMATION
  Report Type: Spontaneous
  Country: US (occurrence: US)
  Receive Date: 20130111
  Receipt Date: 20130111
  Transmission Date: 20140127
  Serious: Yes (Hospitalization)
  Sender: FDA-Public Use
  Company Number: US-BAYER-2013-002704

PATIENT
  Age: 78 Year
  Sex: Female

DRUGS (1)
  1. ALEVE CAPLET/TABLET,MIDOL EXTENDED RELIEF CAPLET [Suspect]
     Dosage: 2 DF, QD

REACTIONS (5)
  - Blood sodium decreased [Recovering/Resolving]
  - Dementia [Recovering/Resolving]
  - Apparent death [Recovering/Resolving]
  - Incorrect drug administration duration [None]
  - Toxicity to various agents [None]
